FAERS Safety Report 8928950 (Version 2)
Quarter: 2013Q1

REPORT INFORMATION
  Report Type: Spontaneous
  Country: JP (occurrence: JP)
  Receive Date: 20121127
  Receipt Date: 20130328
  Transmission Date: 20140127
  Serious: Yes (Hospitalization)
  Sender: FDA-Public Use
  Company Number: JP-VERTEX PHARMACEUTICAL INC.-2012-025071

PATIENT
  Age: 72 Year
  Sex: Female

DRUGS (3)
  1. TELAVIC [Suspect]
     Indication: HEPATITIS C
     Dosage: 1500 MG, QD
     Route: 048
     Dates: start: 20121012, end: 20121112
  2. TELAVIC [Suspect]
     Dosage: 750 MG, QD
     Route: 048
     Dates: start: 20121113
  3. TELAVIC [Suspect]
     Dosage: 250 MG, QD
     Route: 048

REACTIONS (1)
  - Drug eruption [Recovered/Resolved]
